FAERS Safety Report 24147949 (Version 4)
Quarter: 2024Q4

REPORT INFORMATION
  Report Type: Spontaneous
  Country: FR (occurrence: FR)
  Receive Date: 20240729
  Receipt Date: 20241121
  Transmission Date: 20250115
  Serious: Yes (Death)
  Sender: ROCHE
  Company Number: FR-ROCHE-10000032845

PATIENT
  Age: 72 Year
  Sex: Male

DRUGS (1)
  1. GLOFITAMAB [Suspect]
     Active Substance: GLOFITAMAB
     Indication: Diffuse large B-cell lymphoma refractory
     Dosage: FINAL DOSAGE OF 2.5 MG
     Route: 042
     Dates: start: 20240707, end: 20240707

REACTIONS (1)
  - Septic shock [Fatal]
